FAERS Safety Report 10018987 (Version 3)
Quarter: 2015Q1

REPORT INFORMATION
  Report Type: Spontaneous
  Country: JP (occurrence: JP)
  Receive Date: 20140318
  Receipt Date: 20150129
  Transmission Date: 20150720
  Serious: Yes (Life-Threatening, Other)
  Sender: FDA-Public Use
  Company Number: JP-GLAXOSMITHKLINE-B0976865A

PATIENT
  Age: 31 Year
  Sex: Male

DRUGS (6)
  1. PAZOPANIB [Suspect]
     Active Substance: PAZOPANIB
     Indication: SOFT TISSUE SARCOMA
     Dosage: 800 MG, QD
     Route: 048
     Dates: start: 20140222, end: 20140308
  2. LYRICA [Concomitant]
     Active Substance: PREGABALIN
     Indication: NEUROPATHY PERIPHERAL
     Dosage: 75 MG, BID
     Dates: start: 20130925, end: 20140308
  3. RILMAZAFONE HYDROCHLORIDE HYDRATE [Concomitant]
     Active Substance: RILMAZAFONE HYDROCHLORIDE
     Indication: PANIC DISORDER
     Dosage: 1 MG, QD
     Dates: end: 20140308
  4. PAXIL [Concomitant]
     Active Substance: PAROXETINE HYDROCHLORIDE
     Dosage: 5 MG, QID
     Dates: end: 20140308
  5. DEPAS [Concomitant]
     Active Substance: ETIZOLAM
     Indication: PANIC DISORDER
     Dosage: 1.0 MG, UNK
  6. CALMDOWN [Concomitant]
     Active Substance: ALPRAZOLAM
     Indication: PANIC DISORDER
     Dosage: 0.4 MG, QID
     Dates: end: 20140308

REACTIONS (5)
  - Tumour embolism [Unknown]
  - Dysarthria [Unknown]
  - Hemiplegia [Unknown]
  - Cerebral infarction [Recovering/Resolving]
  - Dysstasia [Unknown]

NARRATIVE: CASE EVENT DATE: 20140308
